FAERS Safety Report 8303839-5 (Version None)
Quarter: 2012Q2

REPORT INFORMATION
  Report Type: 
  Country: None (occurrence: None)
  Receive Date: 20120423
  Receipt Date: 20120416
  Transmission Date: 20120825
  Serious: Yes (Hospitalization)
  Sender: FDA-Public Use
  Company Number: PHEH2012US000496

PATIENT
  Sex: Female
  Weight: 53.515 kg

DRUGS (11)
  1. FOLIC ACID [Concomitant]
  2. PHENERGAN HCL [Concomitant]
  3. LASIX [Concomitant]
  4. ZOLOFT [Concomitant]
  5. DILANTIN [Concomitant]
  6. HYDREA [Concomitant]
  7. ZESTRIL [Concomitant]
  8. EXELON [Concomitant]
  9. VICODIN [Concomitant]
  10. EXJADE [Suspect]
     Indication: SICKLE CELL ANAEMIA
     Dosage: 125 MG, DAILY
     Route: 048
     Dates: start: 20071030
  11. MEGACE [Concomitant]

REACTIONS (6)
  - BLOOD BILIRUBIN ABNORMAL [None]
  - PNEUMONIA [None]
  - SICKLE CELL ANAEMIA WITH CRISIS [None]
  - ABDOMINAL PAIN [None]
  - PALLOR [None]
  - HAEMOGLOBIN DECREASED [None]
